FAERS Safety Report 14164919 (Version 1)
Quarter: 2017Q4

REPORT INFORMATION
  Report Type: Spontaneous
  Country: US (occurrence: US)
  Receive Date: 20171107
  Receipt Date: 20171107
  Transmission Date: 20180321
  Serious: No
  Sender: FDA-Public Use
  Company Number: US-SHIRE-US201722419

PATIENT

DRUGS (1)
  1. CINRYZE [Suspect]
     Active Substance: HUMAN C1-ESTERASE INHIBITOR
     Indication: HEREDITARY ANGIOEDEMA
     Dosage: 500 IU IN 8 ML VIAL, EVERY OTHER DAY

REACTIONS (4)
  - Drug hypersensitivity [Unknown]
  - Product quality issue [Unknown]
  - Inappropriate schedule of drug administration [Unknown]
  - Adverse drug reaction [Unknown]
